FAERS Safety Report 8485352-8 (Version None)
Quarter: 2012Q3

REPORT INFORMATION
  Report Type: 
  Country: None (occurrence: None)
  Receive Date: 20120703
  Receipt Date: 20120622
  Transmission Date: 20120928
  Serious: Yes (Hospitalization)
  Sender: FDA-Public Use
  Company Number: FR-ACTELION-A-CH2012-67814

PATIENT
  Age: 5 Year
  Sex: Female

DRUGS (2)
  1. ZAVESCA [Suspect]
     Indication: NIEMANN-PICK DISEASE
     Dosage: 150 MG, QD
     Route: 048
     Dates: start: 20100401
  2. ZAVESCA [Suspect]
     Dosage: 50 MG, QD
     Route: 048

REACTIONS (4)
  - NIEMANN-PICK DISEASE [None]
  - GASTROINTESTINAL DISORDER [None]
  - CONDITION AGGRAVATED [None]
  - NO THERAPEUTIC RESPONSE [None]
